FAERS Safety Report 20684941 (Version 3)
Quarter: 2022Q2

REPORT INFORMATION
  Report Type: Other
  Country: IT (occurrence: None)
  Receive Date: 20220407
  Receipt Date: 20220517
  Transmission Date: 20220721
  Serious: Yes (Death)
  Sender: FDA-Public Use
  Company Number: IT-Merck Healthcare KGaA-9311298

PATIENT
  Age: 47 Year
  Sex: Female
  Weight: 62 kg

DRUGS (2)
  1. MAVENCLAD [Suspect]
     Active Substance: CLADRIBINE
     Indication: Relapsing-remitting multiple sclerosis
     Dosage: YEAR ONE MONTH ONE THERAPY: 2 TABLETS ON DAY 1 AND 1 TABLET ON DAYS 2 TO 5
     Route: 048
     Dates: start: 20210617, end: 20210621
  2. MAVENCLAD [Suspect]
     Active Substance: CLADRIBINE
     Dosage: YEAR ONE MONTH TWO THERAPY: 2 TABLETS ON DAY 1 AND 1 TABLET ON DAYS 2 TO 5
     Route: 048
     Dates: start: 20210715, end: 20210719

REACTIONS (4)
  - Nocardiosis [Fatal]
  - Cerebrovascular disorder [Fatal]
  - Hydrocephalus [Fatal]
  - Lung disorder [Fatal]

NARRATIVE: CASE EVENT DATE: 20210824
